FAERS Safety Report 7651873-0 (Version None)
Quarter: 2011Q3

REPORT INFORMATION
  Report Type: 
  Country: None (occurrence: None)
  Receive Date: 20110803
  Receipt Date: 20110726
  Transmission Date: 20111222
  Serious: Yes (Hospitalization)
  Sender: FDA-Public Use
  Company Number: US-BIOGENIDEC-2011BI028075

PATIENT
  Age: 39 Year
  Sex: Male

DRUGS (4)
  1. AVONEX [Suspect]
     Route: 030
     Dates: start: 20071201
  2. AVONEX [Suspect]
     Indication: MULTIPLE SCLEROSIS
     Route: 030
  3. PRISTIQ [Concomitant]
     Dates: start: 20110101, end: 20110101
  4. AVONEX [Suspect]
     Route: 030
     Dates: start: 20110201

REACTIONS (1)
  - AGITATION [None]
